FAERS Safety Report 12774745 (Version 1)
Quarter: 2016Q3

REPORT INFORMATION
  Report Type: Spontaneous
  Country: US (occurrence: US)
  Receive Date: 20160921
  Receipt Date: 20160921
  Transmission Date: 20161109
  Serious: Yes (Hospitalization)
  Sender: FDA-Public Use
  Company Number: None

PATIENT
  Age: 73 Year
  Sex: Male
  Weight: 107.4 kg

DRUGS (1)
  1. DAPTOMYCIN. [Suspect]
     Active Substance: DAPTOMYCIN
     Indication: RHABDOMYOLYSIS
     Route: 042
     Dates: start: 20160810, end: 20160823

REACTIONS (5)
  - Asthenia [None]
  - Myalgia [None]
  - Rhabdomyolysis [None]
  - Acute kidney injury [None]
  - Hepatic enzyme increased [None]

NARRATIVE: CASE EVENT DATE: 20160823
